FAERS Safety Report 9678692 (Version 2)
Quarter: 2013Q4

REPORT INFORMATION
  Report Type: Spontaneous
  Country: US (occurrence: US)
  Receive Date: 20131108
  Receipt Date: 20131206
  Transmission Date: 20140711
  Serious: Yes (Hospitalization)
  Sender: FDA-Public Use
  Company Number: US-PFIZER INC-2013317526

PATIENT
  Age: 69 Year
  Sex: Female

DRUGS (41)
  1. XELJANZ [Suspect]
     Indication: RHEUMATOID ARTHRITIS
     Dosage: 5 MG, 2X/DAY
     Route: 048
     Dates: start: 20130809, end: 20130901
  2. FLUOXETINE [Concomitant]
     Dosage: 40 MG, DAILY
     Route: 048
  3. FLUOXETINE [Concomitant]
     Dosage: 20 MG, 3X/DAY
     Route: 048
  4. LEVOTHYROXINE [Concomitant]
     Indication: THYROID FUNCTION TEST ABNORMAL
     Dosage: 100 UG, DAILY
     Route: 048
  5. LEVOTHYROXINE [Concomitant]
     Dosage: 125 UG, 1X/DAY
     Route: 048
  6. ADVAIR [Concomitant]
     Dosage: UNK
  7. PRO-AIR [Concomitant]
     Dosage: UNK
  8. LUMIGAN [Concomitant]
     Dosage: 0.01% ONE GTT EACH EYE AT NIGHT
     Route: 047
  9. AZOPT [Concomitant]
     Dosage: 1 GTT, 2X/DAY (ONE DROP IN LEFT EYE TWICE A DAY)
     Route: 047
  10. LACTULOSE [Concomitant]
     Dosage: 30 MG, 2X/DAY
  11. LACTULOSE [Concomitant]
     Dosage: 10 G, 2X/DAY
  12. PRESERVISION [Concomitant]
     Dosage: 1 DF, 1X/DAY
  13. ONDANSETRON [Concomitant]
     Dosage: 4 MG, AS NEEDED
  14. CALCIUM [Concomitant]
     Dosage: 4 DF, DAILY
  15. ACIDOPHILUS [Concomitant]
     Dosage: 100 UG, DAILY
  16. OMEPRAZOLE [Concomitant]
     Dosage: 20 MG, DAILY
  17. SULFASALAZINE [Concomitant]
     Dosage: 3000 MG, DAILY
  18. CARBIDOPA [Concomitant]
     Dosage: UNK
  19. FERREX [Concomitant]
     Dosage: 150 MG, DAILY
  20. VITAMIN D3 [Concomitant]
     Dosage: 1200 IU, DAILY
  21. FUROSEMIDE [Concomitant]
     Dosage: 40 MG, 2X/DAY
  22. PRAVASTATIN [Concomitant]
     Dosage: 40 MG, 1X/DAY (AT NIGHT)
  23. METHOTREXATE [Concomitant]
     Dosage: 2.5 MG, 8 TAB(S) OR AS DIRECTED QWEEK WITH EVENING
  24. AZULFIDINE EN [Concomitant]
     Dosage: 500 MG, 2 TAB(S) TID
  25. FOLIC ACID [Concomitant]
     Dosage: 1 MG, 1X/DAY
  26. CLONAZEPAM [Concomitant]
     Dosage: 0.5 MG, 2X/DAY
  27. MIRTAZAPINE [Concomitant]
     Dosage: 15 MG, 1X/DAY (1 TAB QHS)
  28. HYDROXYZINE HYDROCHLORIDE [Concomitant]
     Dosage: 25 MG, 1 TAB(S) BID - TID
  29. LOSARTAN [Concomitant]
     Dosage: 25 MG, 1X/DAY
  30. SPIRONOLACTONE [Concomitant]
     Dosage: 25 MG, 1X/DAY
  31. CARBIDOPA-LEVODOPA [Concomitant]
     Dosage: 1 DF, 2X/DAY
  32. QVAR [Concomitant]
     Dosage: 80 MCG/INH 1 PUFF(S) BID
  33. ALBUTEROL [Concomitant]
     Dosage: 90 MCG/INH 2 PUFF(S) BID
  34. OXYGEN [Concomitant]
     Dosage: 2 L, AS DIRECTED QD
  35. CALCIUM CITRATE [Concomitant]
     Dosage: 250 MG, 2X/DAY
  36. ASA [Concomitant]
     Dosage: 81 MG, 1X/DAY
  37. PROBIOTIC FORMULA [Concomitant]
     Dosage: 1 DF, 1X/DAY (1 CAP(S) QD)
  38. ARTIFICIAL TEARS [Concomitant]
     Dosage: 1 GTT, AS NEEDED
  39. PROMETHAZINE [Concomitant]
     Dosage: 25 MG, AS NEEDED
  40. IBUPROFEN [Concomitant]
     Indication: PYREXIA
     Dosage: 400 MG, AS NEEDED (200 MG 2 TAB(S) PRN)
  41. TRAMADOL [Concomitant]
     Dosage: 50 MG, AS NEEDED

REACTIONS (6)
  - Anaemia [Recovered/Resolved]
  - Hypothyroidism [Unknown]
  - Arthralgia [Unknown]
  - Soft tissue disorder [Unknown]
  - Spinal pain [Unknown]
  - Musculoskeletal stiffness [Unknown]
